FAERS Safety Report 25470877 (Version 1)
Quarter: 2025Q2

REPORT INFORMATION
  Report Type: Spontaneous
  Country: CN (occurrence: CN)
  Receive Date: 20250624
  Receipt Date: 20250624
  Transmission Date: 20250716
  Serious: Yes (Other)
  Sender: ALEXION PHARMACEUTICALS
  Company Number: CN-ASTRAZENECA-202506CHN016903CN

PATIENT
  Age: 95 Year
  Weight: 40 kg

DRUGS (3)
  1. DAPAGLIFLOZIN [Suspect]
     Active Substance: DAPAGLIFLOZIN
     Indication: Blood glucose abnormal
     Dosage: 10 MILLIGRAM, QD
  2. Levofloxacin + Ornidazole [Concomitant]
     Indication: Blood glucose abnormal
     Dosage: 0.5 MILLIGRAM, QD
  3. Foscarnet sodium and sodium chloride injection [Concomitant]
     Dosage: 200 MILLILITER, QD

REACTIONS (4)
  - Pollakiuria [Recovering/Resolving]
  - Micturition urgency [Recovering/Resolving]
  - Dysuria [Recovering/Resolving]
  - Bladder discomfort [Recovering/Resolving]
